FAERS Safety Report 9022605 (Version 1)
Quarter: 2013Q1

REPORT INFORMATION
  Report Type: Spontaneous
  Country: US (occurrence: US)
  Receive Date: 20130118
  Receipt Date: 20130118
  Transmission Date: 20140127
  Serious: Yes (Other)
  Sender: FDA-Public Use
  Company Number: US-GLAXOSMITHKLINE-A0998831A

PATIENT
  Age: 53 Year
  Sex: Female
  Weight: 51.4 kg

DRUGS (12)
  1. PROMACTA [Suspect]
     Indication: THROMBOCYTOPENIA
     Dosage: 50MG PER DAY
     Route: 048
  2. MOTRIN [Concomitant]
  3. CLONAZEPAM [Concomitant]
  4. VITAMIN E [Concomitant]
  5. SYMBICORT [Concomitant]
  6. NEXIUM [Concomitant]
  7. RANITIDINE [Concomitant]
  8. PROAIR HFA [Concomitant]
  9. CALCIUM [Concomitant]
  10. VITAMIN A [Concomitant]
  11. VITAMIN D [Concomitant]
  12. BIOTIN [Concomitant]

REACTIONS (5)
  - Haemorrhage [Unknown]
  - Abdominal pain [Unknown]
  - Dyspepsia [Unknown]
  - Contusion [Unknown]
  - Treatment noncompliance [Unknown]
